FAERS Safety Report 7782423-6 (Version None)
Quarter: 2011Q3

REPORT INFORMATION
  Report Type: 
  Country: None (occurrence: None)
  Receive Date: 20110928
  Receipt Date: 20110915
  Transmission Date: 20111222
  Serious: Yes (Hospitalization, Other)
  Sender: FDA-Public Use
  Company Number: JP-AMGEN-JPNSP2011045100

PATIENT

DRUGS (6)
  1. ENBREL [Suspect]
     Indication: RHEUMATOID ARTHRITIS
     Dosage: 50 MG, WEEKLY
     Route: 058
     Dates: start: 20110623, end: 20110812
  2. CELECOXIB [Suspect]
     Dosage: UNK
  3. VOLTAREN [Suspect]
     Dosage: UNK
  4. ISONIAZID [Suspect]
     Dosage: UNK
     Route: 065
  5. PREDNISOLONE [Suspect]
     Dosage: UNK
  6. CLARITHROMYCIN [Suspect]
     Dosage: UNK
     Route: 065

REACTIONS (2)
  - INTERSTITIAL LUNG DISEASE [None]
  - STEVENS-JOHNSON SYNDROME [None]
